FAERS Safety Report 9493270 (Version 2)
Quarter: 2013Q3

REPORT INFORMATION
  Report Type: Spontaneous
  Country: FR (occurrence: FR)
  Receive Date: 20130902
  Receipt Date: 20130926
  Transmission Date: 20140515
  Serious: Yes (Other)
  Sender: FDA-Public Use
  Company Number: PHHY2013FR094810

PATIENT
  Age: 57 Year
  Sex: Male

DRUGS (4)
  1. VOLTARENE LP [Suspect]
     Indication: SCIATICA
     Dosage: 75 MG, QD
     Route: 048
  2. DUROGESIC [Suspect]
     Indication: SCIATICA
     Dosage: 25 UG/HR, QD
     Route: 062
  3. DUROGESIC [Suspect]
     Dosage: 25 UG/HR, EVERY 3 DAYS
     Route: 062
  4. SEGLOR [Concomitant]
     Dosage: UNK UKN, PRN

REACTIONS (4)
  - Speech disorder [Unknown]
  - Aphasia [Unknown]
  - Dizziness [Unknown]
  - Tremor [Unknown]
